FAERS Safety Report 9268970 (Version 1)
Quarter: 2013Q2

REPORT INFORMATION
  Report Type: Spontaneous
  Country: US (occurrence: US)
  Receive Date: 20130503
  Receipt Date: 20130503
  Transmission Date: 20140414
  Serious: No
  Sender: FDA-Public Use
  Company Number: US-BIOGENIDEC-2013BI039074

PATIENT
  Age: 38 Year
  Sex: Female

DRUGS (5)
  1. TYSABRI [Suspect]
     Indication: MULTIPLE SCLEROSIS
     Route: 042
     Dates: start: 20110422
  2. AVONEX [Concomitant]
     Indication: MULTIPLE SCLEROSIS
     Route: 030
     Dates: start: 20080505
  3. BENADRYL [Concomitant]
     Indication: HYPERTENSION
     Dates: start: 201302
  4. BENADRYL [Concomitant]
     Indication: FLUSHING
     Dates: start: 201302
  5. BENADRYL [Concomitant]
     Indication: BODY TEMPERATURE INCREASED
     Dates: start: 201302

REACTIONS (3)
  - Body temperature increased [Recovered/Resolved]
  - Flushing [Recovered/Resolved]
  - Hypertension [Recovered/Resolved]
